FAERS Safety Report 4597815-6 (Version None)
Quarter: 2005Q1

REPORT INFORMATION
  Report Type: 
  Country: None (occurrence: None)
  Receive Date: 20050303
  Receipt Date: 20050225
  Transmission Date: 20050727
  Serious: Yes (Other)
  Sender: FDA-Public Use
  Company Number: US-MERCK-0502USA03448

PATIENT
  Sex: Male

DRUGS (2)
  1. VIOXX [Suspect]
     Route: 048
  2. COUMADIN [Concomitant]
     Route: 065

REACTIONS (2)
  - CARDIOMEGALY [None]
  - PULMONARY EMBOLISM [None]
